FAERS Safety Report 12875411 (Version 3)
Quarter: 2016Q4

REPORT INFORMATION
  Report Type: Spontaneous
  Country: PH (occurrence: PH)
  Receive Date: 20161024
  Receipt Date: 20161130
  Transmission Date: 20170207
  Serious: Yes (Disabling, Other)
  Sender: FDA-Public Use
  Company Number: PH-009507513-1610PHL008157

PATIENT
  Age: 28 Year
  Sex: Female

DRUGS (1)
  1. IMPLANON [Suspect]
     Active Substance: ETONOGESTREL
     Indication: CONTRACEPTION
     Dosage: UNK UNK, UNKNOWN
     Route: 059
     Dates: start: 20160714

REACTIONS (18)
  - Hypotonia [Recovered/Resolved]
  - Slow speech [Recovered/Resolved]
  - Head discomfort [Recovered/Resolved]
  - Dysarthria [Recovered/Resolved]
  - Musculoskeletal discomfort [Recovered/Resolved]
  - Transient ischaemic attack [Recovered/Resolved]
  - Pallor [Recovered/Resolved]
  - Menorrhagia [Recovered/Resolved]
  - Muscular weakness [Recovered/Resolved]
  - Muscle spasms [Recovered/Resolved]
  - Chest discomfort [Recovered/Resolved]
  - Dizziness [Recovered/Resolved]
  - Asthenia [Recovered/Resolved]
  - Metrorrhagia [Recovered/Resolved]
  - Abasia [Recovered/Resolved]
  - Cerebrovascular accident [Recovered/Resolved]
  - Angular cheilitis [Recovered/Resolved]
  - Headache [Recovered/Resolved]

NARRATIVE: CASE EVENT DATE: 2016
